FAERS Safety Report 8462778-X (Version None)
Quarter: 2012Q2

REPORT INFORMATION
  Report Type: 
  Country: None (occurrence: None)
  Receive Date: 20120625
  Receipt Date: 20120615
  Transmission Date: 20120825
  Serious: Yes (Life-Threatening, Other)
  Sender: FDA-Public Use
  Company Number: US-ROCHE-1080942

PATIENT
  Sex: Male

DRUGS (22)
  1. PEGASYS [Suspect]
     Indication: HEPATITIS C
     Route: 058
     Dates: start: 20120511, end: 20120611
  2. ELAVIL [Concomitant]
     Dates: start: 19840101
  3. PEGASYS [Suspect]
     Dosage: DOSE REDUCED
     Route: 058
     Dates: start: 20120611
  4. AMLODIPINE [Concomitant]
     Dates: start: 20120101
  5. LORAZEPAM [Concomitant]
     Dates: start: 20120518
  6. EFAVIRENZ [Concomitant]
     Dates: start: 20080101
  7. IBUPROFEN [Concomitant]
     Dates: start: 20050101
  8. GLUCOSAMINE SULFATE/METHYL SULFONYL METHANE [Concomitant]
     Dates: start: 20120101
  9. PROCRIT [Concomitant]
     Dates: start: 20120601
  10. TENOFOVIR DISOPROXIL FUMARATE [Concomitant]
     Dates: start: 20080101
  11. MULTI-VITAMIN [Concomitant]
     Dates: start: 20000101
  12. ABACAVIR [Concomitant]
     Dates: start: 20080101
  13. COPEGUS [Suspect]
     Dosage: DOSE REDUCED
     Route: 048
     Dates: start: 20120611
  14. FLOMAX [Concomitant]
     Dates: start: 20090101
  15. PREVACID [Concomitant]
     Dates: start: 20100101
  16. LORATADINE [Concomitant]
     Dates: start: 20020101
  17. FLONASE [Concomitant]
     Dates: start: 20020101
  18. DACLATASVIR [Suspect]
     Indication: HEPATITIS C
     Route: 048
     Dates: start: 20120511
  19. AMOXICILLIN AND CLAVULANATE POTASSIUM [Concomitant]
     Dates: start: 20120613
  20. COPEGUS [Suspect]
     Indication: HEPATITIS C
     Route: 048
     Dates: start: 20120511, end: 20120611
  21. LISINOPRIL [Concomitant]
     Dates: start: 20080101
  22. KETOCONAZOLE [Concomitant]
     Dates: start: 20120520

REACTIONS (2)
  - HYPOTENSION [None]
  - DYSPNOEA [None]
